FAERS Safety Report 6244044-6 (Version None)
Quarter: 2009Q2

REPORT INFORMATION
  Report Type: 
  Country: None (occurrence: None)
  Receive Date: 20090625
  Receipt Date: 20080520
  Transmission Date: 20091009
  Serious: Yes (Other)
  Sender: FDA-Public Use
  Company Number: US-ASTRAZENECA-2007UW19310

PATIENT
  Age: 19282 Day
  Sex: Female
  Weight: 125.6 kg

DRUGS (13)
  1. SEROQUEL [Suspect]
     Indication: BIPOLAR DISORDER
     Route: 048
     Dates: start: 20050211
  2. SEROQUEL [Suspect]
     Indication: DEPRESSION
     Route: 048
     Dates: start: 20050211
  3. DILANTIN [Concomitant]
     Route: 048
     Dates: start: 20040220
  4. LIPITOR [Concomitant]
     Route: 048
     Dates: start: 20061023
  5. METOPROLOL SUCCINATE [Concomitant]
     Route: 048
     Dates: start: 20070518
  6. GEODON [Concomitant]
     Route: 048
     Dates: end: 20071211
  7. FLUCONAZOLE [Concomitant]
     Route: 048
     Dates: end: 20071211
  8. NORVASC [Concomitant]
     Route: 048
     Dates: start: 20040225
  9. HYDROCHLOROTHIAZIDE [Concomitant]
     Route: 048
     Dates: start: 20020929
  10. ADVAIR HFA [Concomitant]
     Route: 045
     Dates: start: 20050313
  11. ZOLOFT [Concomitant]
     Route: 048
     Dates: start: 20040225
  12. PREMARIN [Concomitant]
     Route: 048
     Dates: start: 20020926
  13. PLENDIL [Concomitant]
     Route: 048
     Dates: start: 20020926

REACTIONS (5)
  - DIABETIC RETINOPATHY [None]
  - GLUCOSE TOLERANCE IMPAIRED [None]
  - NEUROPATHY PERIPHERAL [None]
  - OBESITY [None]
  - TYPE 2 DIABETES MELLITUS [None]
